FAERS Safety Report 14666477 (Version 1)
Quarter: 2018Q1

REPORT INFORMATION
  Report Type: Spontaneous
  Country: US (occurrence: US)
  Receive Date: 20180321
  Receipt Date: 20180321
  Transmission Date: 20180509
  Serious: Yes (Death)
  Sender: FDA-Public Use
  Company Number: US-BEH-2018088882

PATIENT
  Sex: Male
  Weight: 59.41 kg

DRUGS (21)
  1. RISEDRONATE [Concomitant]
     Active Substance: RISEDRONATE SODIUM
  2. FLUOXETINE [Concomitant]
     Active Substance: FLUOXETINE HYDROCHLORIDE
  3. PRIVIGEN [Suspect]
     Active Substance: HUMAN IMMUNOGLOBULIN G
     Dosage: UNK
     Route: 042
  4. MYCOPHENOLATE [Concomitant]
     Active Substance: MYCOPHENOLIC ACID
  5. OMEPRAZOLE. [Concomitant]
     Active Substance: OMEPRAZOLE
  6. CALCIUM 600 PLUS VITAMIN D3 [Concomitant]
  7. OMEGA-3                            /01866101/ [Concomitant]
     Active Substance: OMEGA-3 FATTY ACIDS
  8. AZITHROMYCIN ANHYDROUS. [Concomitant]
     Active Substance: AZITHROMYCIN ANHYDROUS
  9. MAG-OX [Concomitant]
     Active Substance: MAGNESIUM OXIDE
  10. VALGANCICLOVIR. [Concomitant]
     Active Substance: VALGANCICLOVIR
  11. OMEGA-3                            /01866101/ [Concomitant]
     Active Substance: OMEGA-3 FATTY ACIDS
  12. SULFAMETHOXAZOLE W/TRIMETHOPRIM [Concomitant]
     Active Substance: SULFAMETHOXAZOLE\TRIMETHOPRIM
  13. PRIVIGEN [Suspect]
     Active Substance: HUMAN IMMUNOGLOBULIN G
     Indication: PRODUCT USED FOR UNKNOWN INDICATION
     Dosage: 30 G, EVERY 4 WEEKS
     Route: 042
     Dates: start: 20170530
  14. ACIDOPHILUS [Concomitant]
     Active Substance: LACTOBACILLUS ACIDOPHILUS
  15. AMLODIPINE [Concomitant]
     Active Substance: AMLODIPINE BESYLATE
  16. PREDNISONE. [Concomitant]
     Active Substance: PREDNISONE
  17. ATORVASTATIN [Concomitant]
     Active Substance: ATORVASTATIN
  18. MULTIVITAMINS [Concomitant]
     Active Substance: VITAMINS
  19. GABAPENTIN. [Concomitant]
     Active Substance: GABAPENTIN
  20. FERROUS SULFATE. [Concomitant]
     Active Substance: FERROUS SULFATE
  21. TACROLIMUS. [Concomitant]
     Active Substance: TACROLIMUS

REACTIONS (1)
  - Death [Fatal]
